FAERS Safety Report 20109927 (Version 1)
Quarter: 2021Q4

REPORT INFORMATION
  Report Type: Spontaneous
  Country: GB (occurrence: GB)
  Receive Date: 20211124
  Receipt Date: 20211124
  Transmission Date: 20220303
  Serious: Yes (Other)
  Sender: FDA-Public Use
  Company Number: None

PATIENT
  Age: 35 Year
  Sex: Male
  Weight: 92.52 kg

DRUGS (1)
  1. NAPROXEN [Suspect]
     Active Substance: NAPROXEN
     Indication: Back pain
     Dosage: 50 MILLIGRAM
     Route: 048
     Dates: start: 20210504, end: 20210504

REACTIONS (4)
  - Angioedema [Unknown]
  - Lip swelling [Recovering/Resolving]
  - Penile swelling [Recovering/Resolving]
  - Skin swelling [Unknown]

NARRATIVE: CASE EVENT DATE: 20210504
